FAERS Safety Report 7763069-2 (Version None)
Quarter: 2011Q3

REPORT INFORMATION
  Report Type: 
  Country: None (occurrence: None)
  Receive Date: 20110920
  Receipt Date: 20110915
  Transmission Date: 20111222
  Serious: Yes (Hospitalization)
  Sender: FDA-Public Use
  Company Number: FR-PFIZER INC-2011212165

PATIENT
  Age: 79 Year
  Sex: Female

DRUGS (13)
  1. ATORVASTATIN CALCIUM [Suspect]
     Dosage: 10 MG, 1X/DAY
     Route: 048
     Dates: start: 20100701
  2. ZOLPIDEM [Suspect]
     Dosage: 1 DF, 1X/DAY
     Route: 048
     Dates: start: 20100224
  3. BISOPROLOL FUMARATE [Suspect]
     Dosage: 1 DF, 1X/DAY
     Route: 048
     Dates: start: 20100224
  4. FORLAX [Suspect]
     Dosage: 1 DF, 1X/DAY
     Route: 048
     Dates: start: 20100224
  5. ASPIRIN [Suspect]
     Dosage: 1 DF, 1X/DAY
     Route: 048
     Dates: start: 20100723
  6. EQUANIL [Suspect]
     Dosage: UNK
     Route: 048
     Dates: start: 20101112, end: 20110513
  7. PAROXETINE HCL [Suspect]
     Dosage: 20 MG, 1X/DAY
     Route: 048
     Dates: start: 20100706
  8. LEXOMIL [Suspect]
     Dosage: UNK
     Route: 048
     Dates: start: 20100817, end: 20110427
  9. PAROXETINE HCL [Suspect]
     Dosage: 10 MG, 1X/DAY
  10. PANTOPRAZOLE SODIUM [Suspect]
     Dosage: 1 DF, 1X/DAY
     Route: 048
     Dates: start: 20100224
  11. ACETAMINOPHEN [Suspect]
     Dosage: UNK
     Route: 048
     Dates: start: 20100224
  12. ESIDRIX [Suspect]
     Dosage: UNK
     Route: 048
     Dates: start: 20100201, end: 20110420
  13. BONIVA [Suspect]
     Dosage: UNK
     Route: 048
     Dates: start: 20100201, end: 20110520

REACTIONS (4)
  - EOSINOPHILIA [None]
  - PRURITUS [None]
  - ECZEMA [None]
  - PRURIGO [None]
